FAERS Safety Report 4853736-2 (Version None)
Quarter: 2005Q4

REPORT INFORMATION
  Report Type: 
  Country: None (occurrence: None)
  Receive Date: 20051214
  Receipt Date: 20051208
  Transmission Date: 20060501
  Serious: Yes (Other)
  Sender: FDA-Public Use
  Company Number: CA-GLAXOSMITHKLINE-A0585580A

PATIENT
  Age: 23 Year
  Sex: Male

DRUGS (2)
  1. NYTOL EXTRA STRENGTH CAPLETS [Suspect]
     Indication: DRUG USE FOR UNKNOWN INDICATION
     Route: 048
     Dates: start: 20001208
  2. GRAVOL TAB [Concomitant]
     Dates: start: 20001208

REACTIONS (2)
  - DEPENDENCE [None]
  - OVERDOSE [None]
